FAERS Safety Report 5092085-7 (Version None)
Quarter: 2006Q3

REPORT INFORMATION
  Report Type: 
  Country: None (occurrence: None)
  Receive Date: 20060825
  Receipt Date: 20060809
  Transmission Date: 20061208
  Serious: Yes (Other)
  Sender: FDA-Public Use
  Company Number: 8013358

PATIENT
  Age: 19 Year
  Sex: Female

DRUGS (4)
  1. KEPPRA [Suspect]
     Indication: EPILEPSY
     Dosage: 2 G/D PO
     Route: 048
     Dates: start: 20040401, end: 20050901
  2. KEPPRA [Suspect]
     Indication: EPILEPSY
     Dosage: 3 G/D PO
     Route: 048
     Dates: start: 20050901
  3. VALPROATE SODIUM [Concomitant]
  4. FOLIC ACID [Concomitant]

REACTIONS (3)
  - CAESAREAN SECTION [None]
  - DRUG EXPOSURE DURING PREGNANCY [None]
  - UNINTENDED PREGNANCY [None]
